FAERS Safety Report 20611862 (Version 2)
Quarter: 2022Q1

REPORT INFORMATION
  Report Type: Spontaneous
  Country: US (occurrence: US)
  Receive Date: 20220318
  Receipt Date: 20220321
  Transmission Date: 20220423
  Serious: No
  Sender: FDA-Public Use
  Company Number: US-BIOGEN-2022BI01099085

PATIENT
  Sex: Female

DRUGS (10)
  1. VUMERITY [Suspect]
     Active Substance: DIROXIMEL FUMARATE
     Indication: Multiple sclerosis
     Route: 048
     Dates: start: 20210626
  2. ALPRAZOLAM [Concomitant]
     Active Substance: ALPRAZOLAM
     Indication: Product used for unknown indication
     Dosage: BD
     Route: 065
  3. IMIPRAMINE HYDROCHLORIDE [Concomitant]
     Active Substance: IMIPRAMINE HYDROCHLORIDE
     Route: 065
  4. CYCLOBENZPRINE [Concomitant]
     Route: 065
  5. BUTALBITAL [Concomitant]
     Active Substance: BUTALBITAL
     Route: 065
  6. METHADONE HYDROCHLORIDE [Concomitant]
     Active Substance: METHADONE HYDROCHLORIDE
     Route: 065
  7. METOPROLOL SUCCINATE [Concomitant]
     Active Substance: METOPROLOL SUCCINATE
     Route: 065
  8. REBIF [Concomitant]
     Active Substance: INTERFERON BETA-1A
     Route: 065
  9. Setraline HCL [Concomitant]
     Route: 065
  10. ZOLPIDEM TARTRATE [Concomitant]
     Active Substance: ZOLPIDEM TARTRATE
     Route: 065

REACTIONS (4)
  - Product dose omission in error [Unknown]
  - Chest discomfort [Not Recovered/Not Resolved]
  - Extrasystoles [Not Recovered/Not Resolved]
  - Hot flush [Not Recovered/Not Resolved]
